FAERS Safety Report 20889703 (Version 1)
Quarter: 2022Q2

REPORT INFORMATION
  Report Type: Spontaneous
  Country: US (occurrence: US)
  Receive Date: 20220530
  Receipt Date: 20220530
  Transmission Date: 20220721
  Serious: No
  Sender: FDA-Public Use
  Company Number: US-BRISTOL-MYERS SQUIBB COMPANY-2022-032210

PATIENT
  Age: 37 Year
  Sex: Female
  Weight: 51.25 kg

DRUGS (1)
  1. ONUREG [Suspect]
     Active Substance: AZACITIDINE
     Indication: Acute myeloid leukaemia
     Dosage: 300MG ORAL DAILY FOR 14 DAYS.
     Route: 048
     Dates: start: 20220309, end: 20220419

REACTIONS (1)
  - Nausea [Not Recovered/Not Resolved]
